FAERS Safety Report 4512434-5 (Version None)
Quarter: 2004Q4

REPORT INFORMATION
  Report Type: 
  Country: None (occurrence: None)
  Receive Date: 20041008
  Receipt Date: 20040719
  Transmission Date: 20050328
  Serious: Yes (Other)
  Sender: FDA-Public Use
  Company Number: 351756

PATIENT
  Sex: Male

DRUGS (1)
  1. FUZEON [Suspect]
     Dates: start: 20031201

REACTIONS (8)
  - ANAEMIA [None]
  - ILL-DEFINED DISORDER [None]
  - INJECTION SITE ERYTHEMA [None]
  - INJECTION SITE PAIN [None]
  - INJECTION SITE REACTION [None]
  - T-LYMPHOCYTE COUNT DECREASED [None]
  - TINNITUS [None]
  - VIRAL LOAD INCREASED [None]
